FAERS Safety Report 4274718-8 (Version None)
Quarter: 2004Q1

REPORT INFORMATION
  Report Type: 
  Country: None (occurrence: None)
  Receive Date: 20040120
  Receipt Date: 20031017
  Transmission Date: 20041129
  Serious: Yes (Hospitalization)
  Sender: FDA-Public Use
  Company Number: BW-BRISTOL-MYERS SQUIBB COMPANY-12427167

PATIENT

DRUGS (3)
  1. EFAVIRENZ [Suspect]
     Indication: HIV INFECTION
     Dosage: ON HOLD SINCE 10-SEP-2003 AND SUBSEQUENTLY CHANGED
     Dates: end: 20030910
  2. STAVUDINE [Suspect]
     Indication: HIV INFECTION
     Dosage: ON HOLD SINCE 10-SEP-2003 AND SUBSEQUENTLY CHANGED
     Dates: end: 20030910
  3. LAMIVUDINE [Suspect]
     Indication: HIV INFECTION
     Dosage: ON HOLD SINCE 10-SEP-2003 AND SUBSEQUENTLY CHANGED
     Dates: end: 20030910

REACTIONS (14)
  - ABDOMINAL DISTENSION [None]
  - ABDOMINAL PAIN UPPER [None]
  - ANOREXIA [None]
  - BLOOD LACTATE DEHYDROGENASE INCREASED [None]
  - BLOOD LACTIC ACID INCREASED [None]
  - DYSPNOEA [None]
  - ELECTROLYTE IMBALANCE [None]
  - FATIGUE [None]
  - GENERALISED OEDEMA [None]
  - INSOMNIA [None]
  - LIPASE INCREASED [None]
  - NAUSEA [None]
  - PAROTID GLAND ENLARGEMENT [None]
  - VOMITING [None]
